FAERS Safety Report 5933501-5 (Version None)
Quarter: 2008Q4

REPORT INFORMATION
  Report Type: 
  Country: None (occurrence: None)
  Receive Date: 20081029
  Receipt Date: 20081017
  Transmission Date: 20090506
  Serious: Yes (Other)
  Sender: FDA-Public Use
  Company Number: IT-RANBAXY-2008RR-18830

PATIENT
  Age: 47 Year
  Sex: Male

DRUGS (11)
  1. STAVUDINE [Suspect]
     Indication: HIV INFECTION
     Dosage: 40 MG, BID
     Dates: start: 19980101, end: 20050501
  2. STAVUDINE [Suspect]
     Dosage: 40 MG, BID
     Dates: start: 20030701
  3. STAVUDINE [Suspect]
     Dosage: 40 MG, BID
     Dates: start: 20040601
  4. LAMIVUDINE [Suspect]
     Indication: HIV INFECTION
     Dosage: 150 MG, BID
     Dates: start: 19980101, end: 20050501
  5. LAMIVUDINE [Suspect]
     Dosage: UNK
     Dates: start: 20030701
  6. INDINIVIR SULFATE [Suspect]
     Indication: HIV INFECTION
     Dosage: 400 MG, TID
     Dates: end: 20050501
  7. ZIDOVUDINE [Suspect]
     Dosage: 300 MG, QD
     Dates: end: 20050501
  8. NEVIRAPINE [Suspect]
     Dosage: 200 MG, BID
     Route: 061
     Dates: start: 20030701, end: 20050501
  9. PEGINTERFERON-A-2A [Suspect]
     Indication: HEPATITIS C
     Dosage: 180 UG, 1/WEEK
     Dates: start: 20040301, end: 20040801
  10. RIBAVIRIN [Suspect]
     Indication: HEPATITIS C
     Dosage: 200 MG, UNK
     Dates: start: 20040301, end: 20040801
  11. PREDNISOLONE [Concomitant]
     Dosage: UNK

REACTIONS (4)
  - LIP ULCERATION [None]
  - MOUTH ULCERATION [None]
  - ORAL LICHEN PLANUS [None]
  - TONGUE DISORDER [None]
